FAERS Safety Report 5512715-2 (Version None)
Quarter: 2007Q4

REPORT INFORMATION
  Report Type: 
  Country: None (occurrence: None)
  Receive Date: 20071112
  Receipt Date: 20071105
  Transmission Date: 20080405
  Serious: Yes (Hospitalization)
  Sender: FDA-Public Use
  Company Number: CN-ABBOTT-07P-090-0415742-00

PATIENT
  Age: 34 Year
  Sex: Female
  Weight: 54 kg

DRUGS (3)
  1. ZEMPLAR [Suspect]
     Indication: HYPERPARATHYROIDISM SECONDARY
     Dates: start: 20061211, end: 20070122
  2. ACETYLSALICYLIC ACID SRT [Concomitant]
     Indication: RENAL FAILURE CHRONIC
     Route: 048
     Dates: start: 20060715, end: 20070122
  3. HEMOCONTIN [Concomitant]
     Indication: RENAL FAILURE CHRONIC
     Route: 048
     Dates: start: 20070113

REACTIONS (1)
  - RENAL TRANSPLANT [None]
